FAERS Safety Report 4545221-2 (Version None)
Quarter: 2005Q1

REPORT INFORMATION
  Report Type: 
  Country: None (occurrence: None)
  Receive Date: 20050103
  Receipt Date: 20050103
  Transmission Date: 20050727
  Serious: Yes (Life-Threatening)
  Sender: FDA-Public Use
  Company Number: None

PATIENT
  Age: 67 Year
  Sex: Male
  Weight: 86.1834 kg

DRUGS (10)
  1. MAGNEVIST [Suspect]
     Indication: BACK PAIN
     Dosage: 20 ML IV
     Route: 042
     Dates: start: 20041215
  2. MAGNEVIST [Suspect]
     Indication: NUCLEAR MAGNETIC RESONANCE IMAGING
     Dosage: 20 ML IV
     Route: 042
     Dates: start: 20041215
  3. ZOCOR [Concomitant]
  4. ASPIRIN [Concomitant]
  5. FLEXERIL [Concomitant]
  6. SURFAK [Concomitant]
  7. SENNA [Concomitant]
  8. PERCOCET [Concomitant]
  9. ALBUTEROL [Concomitant]
  10. SPIRIVA [Concomitant]

REACTIONS (4)
  - ANAPHYLACTIC REACTION [None]
  - INFUSION RELATED REACTION [None]
  - RESPIRATORY ARREST [None]
  - VOMITING PROJECTILE [None]
